FAERS Safety Report 5805689-8 (Version None)
Quarter: 2008Q3

REPORT INFORMATION
  Report Type: 
  Country: None (occurrence: None)
  Receive Date: 20080710
  Receipt Date: 20080612
  Transmission Date: 20090109
  Serious: No
  Sender: FDA-Public Use
  Company Number: A0732677A

PATIENT
  Sex: Female

DRUGS (7)
  1. TYKERB [Suspect]
     Indication: BREAST CANCER
     Dosage: 5TAB PER DAY
     Route: 048
     Dates: start: 20080406
  2. XELODA [Concomitant]
  3. PREVACID [Concomitant]
  4. PROZAC [Concomitant]
  5. XANAX [Concomitant]
  6. AREDIA [Concomitant]
  7. LOMOTIL [Concomitant]

REACTIONS (3)
  - DIARRHOEA [None]
  - MOUTH ULCERATION [None]
  - NAUSEA [None]
